FAERS Safety Report 6076248-X (Version None)
Quarter: 2009Q1

REPORT INFORMATION
  Report Type: 
  Country: None (occurrence: None)
  Receive Date: 20090209
  Receipt Date: 20090127
  Transmission Date: 20090719
  Serious: Yes (Hospitalization)
  Sender: FDA-Public Use
  Company Number: 2009AL000624

PATIENT
  Age: 65 Year
  Sex: Male

DRUGS (7)
  1. AMLODIPINE BESYLATE [Suspect]
     Indication: HYPERTENSION
     Dosage: 5 MG;QD;PO
     Route: 048
     Dates: end: 20090107
  2. BISOPROLOL [Concomitant]
  3. SIMVASTATIN [Concomitant]
  4. LINATIL [Concomitant]
  5. DIFORMIN RETARD [Concomitant]
  6. FURESIS [Concomitant]
  7. PRIMASPAN [Concomitant]

REACTIONS (9)
  - ABDOMINAL PAIN UPPER [None]
  - BLOOD POTASSIUM INCREASED [None]
  - BRADYCARDIA [None]
  - CREATINE URINE INCREASED [None]
  - HAEMODIALYSIS [None]
  - HYPONATRAEMIA [None]
  - HYPOTENSION [None]
  - METABOLIC ACIDOSIS [None]
  - OEDEMA [None]
